FAERS Safety Report 7459979-6 (Version None)
Quarter: 2011Q2

REPORT INFORMATION
  Report Type: 
  Country: None (occurrence: None)
  Receive Date: 20110505
  Receipt Date: 20110427
  Transmission Date: 20111010
  Serious: Yes (Hospitalization)
  Sender: FDA-Public Use
  Company Number: DE-ABBOTT-11P-062-0723344-00

PATIENT
  Age: 36 Year
  Sex: Female

DRUGS (2)
  1. TRENANTONE [Suspect]
     Indication: BREAST CANCER
     Route: 058
     Dates: start: 20101215, end: 20110311
  2. TAMOXIFEN [Concomitant]
     Indication: BREAST CANCER
     Route: 048

REACTIONS (4)
  - OESTRADIOL INCREASED [None]
  - BLOOD FOLLICLE STIMULATING HORMONE INCREASED [None]
  - UNINTENDED PREGNANCY [None]
  - OVARIAN CYST [None]
